FAERS Safety Report 26014086 (Version 1)
Quarter: 2025Q4

REPORT INFORMATION
  Report Type: Spontaneous
  Country: KR (occurrence: KR)
  Receive Date: 20251108
  Receipt Date: 20251108
  Transmission Date: 20260118
  Serious: Yes (Death, Life-Threatening, Hospitalization, Other)
  Sender: UNICHEM
  Company Number: KR-UNICHEM LABORATORIES LIMITED-UNI-2025-KR-003676

PATIENT

DRUGS (3)
  1. LAMOTRIGINE [Suspect]
     Active Substance: LAMOTRIGINE
     Indication: Epilepsy
     Dosage: 100 MILLIGRAM, QD
     Route: 065
  2. DIVALPROEX SODIUM [Suspect]
     Active Substance: DIVALPROEX SODIUM
     Indication: Epilepsy
     Dosage: 1200 MILLIGRAM, QD
     Route: 065
  3. ARIPIPRAZOLE [Concomitant]
     Active Substance: ARIPIPRAZOLE
     Indication: Organic brain syndrome
     Dosage: 2.5 MILLIGRAM, QD
     Route: 065

REACTIONS (5)
  - Hepatic failure [Fatal]
  - Hepatic encephalopathy [Not Recovered/Not Resolved]
  - Coagulopathy [Not Recovered/Not Resolved]
  - Stevens-Johnson syndrome [Recovering/Resolving]
  - Drug ineffective [Unknown]
